FAERS Safety Report 7518079-7 (Version None)
Quarter: 2011Q2

REPORT INFORMATION
  Report Type: 
  Country: None (occurrence: None)
  Receive Date: 20110523
  Receipt Date: 20110508
  Transmission Date: 20111010
  Serious: Yes (Hospitalization)
  Sender: FDA-Public Use
  Company Number: PRED20110013

PATIENT
  Age: 22 Year
  Sex: Male

DRUGS (2)
  1. RETISERT [Suspect]
     Indication: UVEITIS
     Dosage: OPHRHALMIC
     Dates: start: 20080701
  2. PREDNISONE [Suspect]
     Indication: EYE INFLAMMATION
     Dosage: 60 MG, ORAL
     Route: 048
     Dates: start: 20090801

REACTIONS (4)
  - SIMPLEX VIRUS TEST POSITIVE [None]
  - VITRITIS [None]
  - DISEASE PROGRESSION [None]
  - NECROTISING RETINITIS [None]
